FAERS Safety Report 7692302-0 (Version None)
Quarter: 2011Q3

REPORT INFORMATION
  Report Type: 
  Country: None (occurrence: None)
  Receive Date: 20110818
  Receipt Date: 20110805
  Transmission Date: 20111222
  Serious: Yes (Other)
  Sender: FDA-Public Use
  Company Number: NO-MYLANLABS-2011S1016447

PATIENT
  Sex: Male
  Weight: 2.2 kg

DRUGS (5)
  1. BETAMETHASONE [Suspect]
     Route: 064
  2. ATOSIBAN [Suspect]
     Route: 064
  3. METOPROLOL [Suspect]
     Route: 064
  4. ASPIRIN [Suspect]
     Route: 064
  5. CANDESARTAN CILEXETIL [Suspect]
     Route: 064

REACTIONS (7)
  - FOETAL GROWTH RESTRICTION [None]
  - PREMATURE BABY [None]
  - RENAL FAILURE [None]
  - RENAL CYST [None]
  - PATENT DUCTUS ARTERIOSUS [None]
  - MATERNAL EXPOSURE DURING PREGNANCY [None]
  - OLIGOHYDRAMNIOS [None]
